FAERS Safety Report 21965277 (Version 2)
Quarter: 2023Q4

REPORT INFORMATION
  Report Type: Report from Study
  Country: US (occurrence: US)
  Receive Date: 20230208
  Receipt Date: 20231214
  Transmission Date: 20240110
  Serious: Yes (Other)
  Sender: FDA-Public Use
  Company Number: US-002147023-NVSC2023US024148

PATIENT
  Sex: Female
  Weight: 124.72 kg

DRUGS (2)
  1. COSENTYX [Suspect]
     Active Substance: SECUKINUMAB
     Indication: Psoriasis
     Dosage: 300 MG (2 SYRINGES)150MG/ML)
     Route: 058
  2. METHOTREXATE [Suspect]
     Active Substance: METHOTREXATE
     Indication: Product used for unknown indication
     Dosage: UNK
     Route: 065

REACTIONS (15)
  - Psoriatic arthropathy [Unknown]
  - Arthropathy [Unknown]
  - Arthritis [Unknown]
  - COVID-19 [Unknown]
  - Psoriasis [Unknown]
  - Skin plaque [Unknown]
  - Rash [Unknown]
  - Skin exfoliation [Unknown]
  - Skin lesion [Unknown]
  - Erythema [Unknown]
  - Pruritus [Unknown]
  - Skin mass [Unknown]
  - Papule [Unknown]
  - Drug ineffective [Unknown]
  - Therapeutic product effect incomplete [Unknown]
